FAERS Safety Report 7935456-0 (Version None)
Quarter: 2011Q4

REPORT INFORMATION
  Report Type: 
  Country: None (occurrence: None)
  Receive Date: 20111122
  Receipt Date: 20111115
  Transmission Date: 20120403
  Serious: Yes (Hospitalization)
  Sender: FDA-Public Use
  Company Number: US-ROXANE LABORATORIES, INC.-2011-RO-01652RO

PATIENT
  Age: 57 Year
  Sex: Male

DRUGS (1)
  1. CALCIUM CARBONATE [Suspect]
     Indication: GASTROOESOPHAGEAL REFLUX DISEASE
     Route: 048

REACTIONS (6)
  - MILK-ALKALI SYNDROME [None]
  - HYPERCALCAEMIA [None]
  - RENAL FAILURE ACUTE [None]
  - BLADDER OUTLET OBSTRUCTION [None]
  - DEEP VEIN THROMBOSIS [None]
  - STATUS EPILEPTICUS [None]
